FAERS Safety Report 21560526 (Version 2)
Quarter: 2023Q4

REPORT INFORMATION
  Report Type: Report from Study
  Country: PR (occurrence: PR)
  Receive Date: 20221107
  Receipt Date: 20231011
  Transmission Date: 20240110
  Serious: Yes (Other)
  Sender: FDA-Public Use
  Company Number: PR-ABBVIE-4135926

PATIENT
  Sex: Female
  Weight: 61.234 kg

DRUGS (20)
  1. HUMIRA [Suspect]
     Active Substance: ADALIMUMAB
     Indication: Ankylosing spondylitis
     Dosage: FORM STRENGTH: 40 MILLIGRAM
     Route: 058
     Dates: start: 2022, end: 20220816
  2. HUMIRA [Suspect]
     Active Substance: ADALIMUMAB
     Indication: Rheumatoid arthritis
     Dosage: FORM STRENGTH: 40 MILLIGRAM
     Route: 058
     Dates: start: 2019, end: 202203
  3. HUMIRA [Suspect]
     Active Substance: ADALIMUMAB
     Dosage: FORM STRENGTH: 40 MILLIGRAM
     Route: 058
     Dates: start: 20191219
  4. CYMBALTA [Concomitant]
     Active Substance: DULOXETINE HYDROCHLORIDE
     Indication: Fibromyalgia
     Dosage: FORM STRENGTH: 30 MILLIGRAM
     Route: 048
     Dates: start: 2018
  5. CELEBREX [Concomitant]
     Active Substance: CELECOXIB
     Indication: Rheumatoid arthritis
     Dosage: FORM STRENGTH: 20 MILLIGRAM
     Route: 048
     Dates: start: 2021
  6. METHOTREXATE [Concomitant]
     Active Substance: METHOTREXATE
     Indication: Rheumatoid arthritis
     Dosage: FORM STRENGTH: 2.5 MILLIGRAM
     Route: 048
     Dates: start: 2021
  7. METHOTREXATE [Concomitant]
     Active Substance: METHOTREXATE
     Indication: Rheumatoid arthritis
     Dosage: FORM STRENGTH: 10 MILLIGRAM
     Route: 048
     Dates: start: 2021
  8. LEVOTHYROXINE [Concomitant]
     Active Substance: LEVOTHYROXINE
     Indication: Thyroid disorder
     Dosage: FORM STRENGTH: 88 MICROGRAM
     Route: 048
     Dates: start: 2001
  9. LEVOTHYROXINE [Concomitant]
     Active Substance: LEVOTHYROXINE
     Indication: Thyroid disorder
     Dosage: FORM STRENGTH: 75 MICROGRAM
     Route: 048
     Dates: start: 2001
  10. LIPITOR [Concomitant]
     Active Substance: ATORVASTATIN CALCIUM
     Indication: Blood cholesterol
     Dosage: FORM STRENGTH: 20 MILLIGRAM?START DATE TEXT: 4 TO 5 YEARS AGO
     Route: 048
     Dates: end: 202111
  11. PEPCID [Concomitant]
     Active Substance: FAMOTIDINE
     Indication: Gastrointestinal disorder
     Dosage: FORM STRENGTH: 40 MILLIGRAM
     Route: 048
     Dates: start: 2005
  12. ZOLEDRONIC ACID [Concomitant]
     Active Substance: ZOLEDRONIC ACID
     Indication: Osteoporosis
     Dates: start: 202202
  13. PROTONIX [Concomitant]
     Active Substance: PANTOPRAZOLE SODIUM
     Indication: Gastrointestinal disorder
     Dosage: FORM STRENGTH: 40 MILLIGRAM
     Route: 048
     Dates: start: 2021
  14. NEURONTIN [Concomitant]
     Active Substance: GABAPENTIN
     Indication: Fibromyalgia
     Dosage: FORM STRENGTH: 300 MILLIGRAM
     Route: 048
     Dates: start: 2018
  15. FOLIC ACID [Concomitant]
     Active Substance: FOLIC ACID
     Indication: Rheumatoid arthritis
     Dosage: FORM STRENGTH: 1 MILLIGRAM
     Route: 048
     Dates: start: 2021
  16. TOZINAMERAN [Concomitant]
     Active Substance: TOZINAMERAN
     Indication: COVID-19 immunisation
     Dosage: 1ST DOSE (ONE IN ONCE)
     Route: 030
     Dates: start: 20210304, end: 20210304
  17. TOZINAMERAN [Concomitant]
     Active Substance: TOZINAMERAN
     Indication: COVID-19 immunisation
     Dosage: 3RD DOSE (ONE IN ONCE)
     Route: 030
     Dates: start: 20210917, end: 20210917
  18. TOZINAMERAN [Concomitant]
     Active Substance: TOZINAMERAN
     Indication: COVID-19 immunisation
     Dosage: 2ND DOSE (ONE IN ONCE)
     Route: 030
     Dates: start: 20210324, end: 20210324
  19. FLEXERIL [Concomitant]
     Active Substance: CYCLOBENZAPRINE HYDROCHLORIDE
     Indication: Analgesic intervention supportive therapy
     Dosage: FORM STRENGTH: 10 MILLIGRAM
     Route: 048
     Dates: start: 2005, end: 202209
  20. CRESTOR [Concomitant]
     Active Substance: ROSUVASTATIN CALCIUM
     Indication: Blood cholesterol
     Dosage: FORM STRENGTH: 20 MILLIGRAM
     Route: 048
     Dates: start: 202211

REACTIONS (8)
  - Exostosis [Recovered/Resolved]
  - Arthralgia [Not Recovered/Not Resolved]
  - Inflammation [Recovering/Resolving]
  - Tooth loss [Recovering/Resolving]
  - Bone pain [Recovering/Resolving]
  - Arthritis [Not Recovered/Not Resolved]
  - Tooth loss [Recovering/Resolving]
  - Dental implantation [Recovering/Resolving]

NARRATIVE: CASE EVENT DATE: 20190101
